FAERS Safety Report 24254379 (Version 1)
Quarter: 2024Q3

REPORT INFORMATION
  Report Type: Spontaneous
  Country: PH (occurrence: PH)
  Receive Date: 20240827
  Receipt Date: 20240827
  Transmission Date: 20241016
  Serious: Yes (Life-Threatening, Hospitalization)
  Sender: PFIZER
  Company Number: PH-PFIZER INC-202400241406

PATIENT
  Age: 24 Year
  Sex: Female

DRUGS (11)
  1. LINEZOLID [Suspect]
     Active Substance: LINEZOLID
     Indication: Tuberculosis
     Dosage: 1 DF, 1X/DAY (1 TAB/DAY)
     Route: 048
     Dates: start: 2020
  2. BEDAQUILINE [Suspect]
     Active Substance: BEDAQUILINE
     Indication: Tuberculosis
     Dosage: 100 MG, 4 TABLETS 3 X A WEEK
     Route: 048
     Dates: start: 2020
  3. PROTIONAMIDE [Suspect]
     Active Substance: PROTIONAMIDE
     Indication: Tuberculosis
     Dosage: 2 DF, 1X/DAY (2 CAPSULES /DAY)
     Route: 048
     Dates: start: 2020
  4. CYCLOSPORINE [Suspect]
     Active Substance: CYCLOSPORINE
     Indication: Tuberculosis
     Dosage: 2 DF, 1X/DAY (2 CAPS/DAY)
     Route: 048
     Dates: start: 2020
  5. PYRIDOXINE [Suspect]
     Active Substance: PYRIDOXINE
     Indication: Tuberculosis
     Dosage: 4 DF, 1X/DAY (4 TABS/DAY)
     Route: 048
     Dates: start: 2020
  6. AMPICILLIN [Concomitant]
     Active Substance: AMPICILLIN
     Indication: Tuberculosis
     Dosage: UNK
     Dates: start: 2020
  7. PENICILLIN G [Concomitant]
     Active Substance: PENICILLIN G
     Indication: Tuberculosis
     Dosage: UNK
     Dates: start: 2020
  8. PYRAZINAMIDE [Concomitant]
     Active Substance: PYRAZINAMIDE
     Indication: Tuberculosis
     Dosage: UNK
     Dates: start: 2020
  9. STREPTOMYCIN [Concomitant]
     Active Substance: STREPTOMYCIN SULFATE
     Indication: Tuberculosis
     Dosage: UNK
     Dates: start: 2020
  10. ISONIAZID [Concomitant]
     Active Substance: ISONIAZID
     Indication: Tuberculosis
     Dosage: UNK
     Dates: start: 2020
  11. ETHAMBUTOL [Concomitant]
     Active Substance: ETHAMBUTOL HYDROCHLORIDE
     Indication: Tuberculosis
     Dosage: UNK
     Dates: start: 2020

REACTIONS (5)
  - Headache [Unknown]
  - Nausea [Unknown]
  - Vomiting [Unknown]
  - Myalgia [Unknown]
  - Off label use [Unknown]
